FAERS Safety Report 8925519 (Version 1)
Quarter: 2012Q4

REPORT INFORMATION
  Report Type: 
  Country: US (occurrence: US)
  Receive Date: 20121126
  Receipt Date: 20121126
  Transmission Date: 20130627
  Serious: No
  Sender: FDA-Public Use
  Company Number: US-VERTEX PHARMACEUTICAL INC.-2012-024860

PATIENT
  Age: 55 Year
  Sex: Female
  Weight: 62 kg

DRUGS (3)
  1. INCIVEK [Suspect]
     Indication: HEPATITIS C
     Dosage: 2 DF, tid
     Route: 048
     Dates: start: 20121021
  2. PEGASYS [Concomitant]
     Indication: HEPATITIS C
     Dosage: UNK, bid
     Route: 048
     Dates: start: 20121021
  3. RIBAVIRIN [Concomitant]
     Indication: HEPATITIS C
     Dosage: UNK, qw
     Route: 058
     Dates: start: 20121021

REACTIONS (4)
  - Blood count abnormal [Not Recovered/Not Resolved]
  - Dizziness [Not Recovered/Not Resolved]
  - Dry skin [Not Recovered/Not Resolved]
  - Pruritus [Not Recovered/Not Resolved]
